FAERS Safety Report 23126771 (Version 2)
Quarter: 2024Q2

REPORT INFORMATION
  Report Type: Other
  Country: FR (occurrence: FR)
  Receive Date: 20231030
  Receipt Date: 20240501
  Transmission Date: 20240716
  Serious: Yes (Hospitalization)
  Sender: FDA-Public Use
  Company Number: FR-BRAINTREE LABORATORIES, INC.-2023BTE00739

PATIENT
  Age: 67 Year
  Sex: Female
  Weight: 66 kg

DRUGS (1)
  1. MAGNESIUM SULFATE\POTASSIUM SULFATE\SODIUM SULFATE [Suspect]
     Active Substance: MAGNESIUM SULFATE\POTASSIUM SULFATE\SODIUM SULFATE
     Indication: Bowel preparation
     Dosage: DOSAGE NOT SPECIFIED
     Route: 048
     Dates: start: 20230917, end: 20230918

REACTIONS (3)
  - Aphthous ulcer [Not Recovered/Not Resolved]
  - Anorectal discomfort [Not Recovered/Not Resolved]
  - Rash [Not Recovered/Not Resolved]

NARRATIVE: CASE EVENT DATE: 20230917
